FAERS Safety Report 6766831-8 (Version None)
Quarter: 2010Q2

REPORT INFORMATION
  Report Type: 
  Country: None (occurrence: None)
  Receive Date: 20100609
  Receipt Date: 20100531
  Transmission Date: 20101027
  Serious: Yes (Life-Threatening)
  Sender: FDA-Public Use
  Company Number: 604115

PATIENT
  Age: 82 Year
  Sex: Male
  Weight: 97 kg

DRUGS (9)
  1. PRECEDEX [Suspect]
     Indication: DRUG USE FOR UNKNOWN INDICATION
     Dosage: 68 UG MICROGRAM(S), INTRAVENOUS; 19.4 UG MICROGRAM(S) (1 HOUR)
     Route: 042
     Dates: end: 20081215
  2. PRECEDEX [Suspect]
     Indication: DRUG USE FOR UNKNOWN INDICATION
     Dosage: 68 UG MICROGRAM(S), INTRAVENOUS; 19.4 UG MICROGRAM(S) (1 HOUR)
     Route: 042
     Dates: start: 20081215
  3. DIGOXIN [Suspect]
     Indication: ATRIOVENTRICULAR BLOCK COMPLETE
     Dosage: 500 UG MICROGRAM(S), INTRAVENOUS
     Route: 042
     Dates: start: 20081215
  4. ASPIRIN [Concomitant]
  5. CHLORPROMAZINE HCL [Concomitant]
  6. (FRUSEMIDE /00032601/) [Concomitant]
  7. HEPARIN SODIUM [Concomitant]
  8. RAMIPRIL [Concomitant]
  9. RANITIDINE [Concomitant]

REACTIONS (2)
  - ATRIOVENTRICULAR BLOCK COMPLETE [None]
  - VENTRICULAR FAILURE [None]
